FAERS Safety Report 20096290 (Version 1)
Quarter: 2021Q4

REPORT INFORMATION
  Report Type: Spontaneous
  Country: CN (occurrence: None)
  Receive Date: 20211122
  Receipt Date: 20211122
  Transmission Date: 20220303
  Serious: Yes (Hospitalization)
  Sender: FDA-Public Use
  Company Number: CN-Merck Healthcare KGaA-9280469

PATIENT
  Age: 29 Year
  Sex: Female
  Weight: 54 kg

DRUGS (3)
  1. OVIDREL [Suspect]
     Active Substance: CHORIOGONADOTROPIN ALFA
     Indication: Infertility
     Route: 058
     Dates: start: 20211004, end: 20211004
  2. UROFOLLITROPIN [Suspect]
     Active Substance: UROFOLLITROPIN
     Indication: Infertility
     Route: 030
     Dates: start: 20210926, end: 20210930
  3. UROFOLLITROPIN [Suspect]
     Active Substance: UROFOLLITROPIN
     Route: 030
     Dates: start: 20211001, end: 20211004

REACTIONS (2)
  - Ovarian hyperstimulation syndrome [Recovering/Resolving]
  - Polycystic ovaries [Recovering/Resolving]

NARRATIVE: CASE EVENT DATE: 20211009
